FAERS Safety Report 19246213 (Version 1)
Quarter: 2021Q2

REPORT INFORMATION
  Report Type: Report from Study
  Country: None (occurrence: CA)
  Receive Date: 20210512
  Receipt Date: 20210512
  Transmission Date: 20210717
  Serious: Yes (Other)
  Sender: FDA-Public Use
  Company Number: CA-ABBVIE-21K-028-3809354-00

PATIENT
  Sex: Male

DRUGS (3)
  1. RINVOQ [Suspect]
     Active Substance: UPADACITINIB
     Indication: RHEUMATOID ARTHRITIS
     Route: 048
     Dates: start: 20210217
  2. RINVOQ [Suspect]
     Active Substance: UPADACITINIB
     Route: 048
  3. ORENCIA [Suspect]
     Active Substance: ABATACEPT
     Indication: PRODUCT USED FOR UNKNOWN INDICATION
     Route: 065

REACTIONS (16)
  - Medical device site pain [Unknown]
  - Abdominal pain upper [Unknown]
  - Hypersomnia [Unknown]
  - Temperature intolerance [Not Recovered/Not Resolved]
  - Dyspepsia [Unknown]
  - Spinal pain [Unknown]
  - Pain [Not Recovered/Not Resolved]
  - Swelling [Unknown]
  - Medical device implantation [Unknown]
  - Arthralgia [Unknown]
  - Pain in extremity [Recovered/Resolved]
  - Rib fracture [Unknown]
  - Drug ineffective [Unknown]
  - Pain in extremity [Unknown]
  - Constipation [Unknown]
  - Nausea [Unknown]

NARRATIVE: CASE EVENT DATE: 2021
